FAERS Safety Report 21375816 (Version 2)
Quarter: 2022Q4

REPORT INFORMATION
  Report Type: Report from Study
  Country: AU (occurrence: AU)
  Receive Date: 20220926
  Receipt Date: 20221007
  Transmission Date: 20230112
  Serious: Yes (Hospitalization)
  Sender: FDA-Public Use
  Company Number: AU-SA-SAC20220916001746

PATIENT
  Age: 56 Year
  Sex: Male
  Weight: 77.5 kg

DRUGS (5)
  1. ISATUXIMAB [Suspect]
     Active Substance: ISATUXIMAB
     Indication: Primary amyloidosis
     Dosage: 770 MG, QOW
     Route: 042
     Dates: start: 20220822, end: 20220822
  2. POMALIDOMIDE [Suspect]
     Active Substance: POMALIDOMIDE
     Indication: Primary amyloidosis
     Dosage: 4 MG (FREQUENCY D1-21)
     Route: 048
     Dates: start: 20220822, end: 20220822
  3. POMALIDOMIDE [Suspect]
     Active Substance: POMALIDOMIDE
     Dosage: 4 MG (FREQUENCY D1-21)
     Dates: start: 20220907, end: 20220907
  4. DEXAMETHASONE [Suspect]
     Active Substance: DEXAMETHASONE
     Indication: Primary amyloidosis
     Dosage: 12 MG, QW
     Route: 048
     Dates: start: 20220822, end: 20220822
  5. DEXAMETHASONE [Suspect]
     Active Substance: DEXAMETHASONE
     Dosage: 12 MG, QW
     Route: 048
     Dates: start: 20220829, end: 20220829

REACTIONS (1)
  - Intestinal pseudo-obstruction [Recovered/Resolved]

NARRATIVE: CASE EVENT DATE: 20220911
